FAERS Safety Report 9688724 (Version 2)
Quarter: 2014Q1

REPORT INFORMATION
  Report Type: Spontaneous
  Country: US (occurrence: None)
  Receive Date: 20131113
  Receipt Date: 20140311
  Transmission Date: 20141002
  Serious: Yes (Hospitalization)
  Sender: FDA-Public Use
  Company Number: CIO13065874

PATIENT
  Age: 2 Year
  Sex: Female
  Weight: 11.3 kg

DRUGS (1)
  1. NYQUIL LESS DROWSY COLD/FLU RELIEF, SOOTHING BERRY FLAVOR(DEXTROMETHORPHAN HYDROBROMIDE 30 MG [Suspect]
     Dosage: 1/4 OF THE BOTTLE, 1 ONLY, ORAL
     Route: 048
     Dates: start: 20131028, end: 20131028

REACTIONS (5)
  - Mydriasis [None]
  - Initial insomnia [None]
  - Accidental exposure to product by child [None]
  - Exposure via ingestion [None]
  - Failure of child resistant mechanism for pharmaceutical product [None]
